FAERS Safety Report 20108184 (Version 2)
Quarter: 2021Q4

REPORT INFORMATION
  Report Type: Report from Study
  Country: NL (occurrence: NL)
  Receive Date: 20211124
  Receipt Date: 20211201
  Transmission Date: 20220303
  Serious: Yes (Hospitalization, Other)
  Sender: FDA-Public Use
  Company Number: NL-NOVARTISPH-NVSC2021NL230844

PATIENT
  Age: 75 Year
  Sex: Female

DRUGS (7)
  1. ALPELISIB [Suspect]
     Active Substance: ALPELISIB
     Indication: Neoplasm malignant
     Dosage: 300 MG, QD
     Route: 048
     Dates: start: 20210908, end: 20210913
  2. ALPELISIB [Suspect]
     Active Substance: ALPELISIB
     Dosage: 250 MG, QD
     Route: 048
     Dates: start: 20210927, end: 20211003
  3. ALPELISIB [Suspect]
     Active Substance: ALPELISIB
     Dosage: 200 MG, QD
     Route: 048
     Dates: start: 20211005, end: 20211011
  4. METFORMIN [Concomitant]
     Active Substance: METFORMIN HYDROCHLORIDE
     Indication: Diabetes mellitus
     Dosage: 500 MG, QD
     Route: 065
  5. METFORMIN [Concomitant]
     Active Substance: METFORMIN HYDROCHLORIDE
     Dosage: 850 MG, BID
     Route: 065
     Dates: start: 20210909
  6. GLICLAZIDE [Concomitant]
     Active Substance: GLICLAZIDE
     Indication: Diabetes mellitus
     Dosage: 30 MG, QD
     Route: 065
     Dates: end: 20210913
  7. GLICLAZIDE [Concomitant]
     Active Substance: GLICLAZIDE
     Dosage: 30 MG, QD
     Route: 065
     Dates: start: 20210922

REACTIONS (3)
  - Renal impairment [Not Recovered/Not Resolved]
  - Hyperglycaemia [Recovered/Resolved with Sequelae]
  - Vaginal haemorrhage [Not Recovered/Not Resolved]

NARRATIVE: CASE EVENT DATE: 20210913
